FAERS Safety Report 14650509 (Version 1)
Quarter: 2018Q1

REPORT INFORMATION
  Report Type: Spontaneous
  Country: JP (occurrence: JP)
  Receive Date: 20180316
  Receipt Date: 20180316
  Transmission Date: 20180509
  Serious: Yes (Life-Threatening, Other)
  Sender: FDA-Public Use
  Company Number: JP-BAUSCH-BL-2018-006551

PATIENT
  Age: 69 Year
  Sex: Female

DRUGS (2)
  1. DEXAMETHASONE. [Suspect]
     Active Substance: DEXAMETHASONE
     Indication: PLASMA CELL MYELOMA
     Dosage: DEX 20 MG/DAY TWICE/WK FOR 3 WKS, EVERY 4-WKS CYCLE; CYCLICAL
     Route: 065
     Dates: start: 20160913, end: 20161003
  2. POMALIDOMIDE [Suspect]
     Active Substance: POMALIDOMIDE
     Indication: PLASMA CELL MYELOMA
     Dosage: 4 MG/DAY FOR 3 WKS; CYCLICAL
     Route: 065
     Dates: start: 20160913, end: 20161003

REACTIONS (1)
  - Drug ineffective [Unknown]
